FAERS Safety Report 14453844 (Version 3)
Quarter: 2018Q1

REPORT INFORMATION
  Report Type: Report from Study
  Country: US (occurrence: US)
  Receive Date: 20180129
  Receipt Date: 20180328
  Transmission Date: 20180509
  Serious: Yes (Other)
  Sender: FDA-Public Use
  Company Number: US-JNJFOC-20180133129

PATIENT
  Age: 65 Year
  Sex: Female

DRUGS (2)
  1. IMBRUVICA [Suspect]
     Active Substance: IBRUTINIB
     Indication: CHRONIC LYMPHOCYTIC LEUKAEMIA
     Route: 048
     Dates: start: 20171128
  2. LETROZOLE. [Concomitant]
     Active Substance: LETROZOLE

REACTIONS (5)
  - Dry mouth [Not Recovered/Not Resolved]
  - Malignant pleural effusion [Recovered/Resolved]
  - Insomnia [Not Recovered/Not Resolved]
  - Fatigue [Unknown]
  - Nasopharyngitis [Recovered/Resolved]

NARRATIVE: CASE EVENT DATE: 201801
